FAERS Safety Report 10024350 (Version 1)
Quarter: 2014Q1

REPORT INFORMATION
  Report Type: Spontaneous
  Country: US (occurrence: None)
  Receive Date: 20140318
  Receipt Date: 20140318
  Transmission Date: 20141002
  Serious: Yes (Hospitalization)
  Sender: FDA-Public Use
  Company Number: None

PATIENT
  Age: 71 Year
  Sex: Female
  Weight: 68.2 kg

DRUGS (1)
  1. AMLODIPINE [Suspect]
     Indication: ARRHYTHMIA

REACTIONS (3)
  - Hallucination [None]
  - Abnormal behaviour [None]
  - Living in residential institution [None]
